FAERS Safety Report 20344359 (Version 1)
Quarter: 2022Q1

REPORT INFORMATION
  Report Type: Spontaneous
  Country: US (occurrence: US)
  Receive Date: 20220118
  Receipt Date: 20220118
  Transmission Date: 20220423
  Serious: Yes (Hospitalization, Other)
  Sender: FDA-Public Use
  Company Number: US-35507-2022-00508

PATIENT
  Age: 66 Year
  Sex: Female

DRUGS (7)
  1. DIVALPROEX SODIUM [Suspect]
     Active Substance: DIVALPROEX SODIUM
     Indication: Bipolar disorder
     Dosage: 250 MILLIGRAM, QD
     Route: 065
     Dates: end: 2018
  2. OPIUM [Concomitant]
     Active Substance: OPIUM
     Indication: Gastrointestinal stoma complication
     Dosage: UNK, RECEIVED OPIUM TINCTURE
     Route: 065
     Dates: start: 2018
  3. SOMATOSTATIN [Concomitant]
     Active Substance: SOMATOSTATIN
     Indication: Gastrointestinal stoma complication
     Dosage: UNK
     Route: 065
     Dates: start: 2018
  4. CHOLESTYRAMINE [Concomitant]
     Active Substance: CHOLESTYRAMINE
     Indication: Gastrointestinal stoma complication
     Dosage: UNK
     Route: 065
     Dates: start: 2018
  5. LOPERAMIDE [Concomitant]
     Active Substance: LOPERAMIDE
     Indication: Gastrointestinal stoma complication
     Dosage: UNK
     Route: 065
     Dates: start: 2018
  6. VENLAFAXINE [Concomitant]
     Active Substance: VENLAFAXINE HYDROCHLORIDE
     Indication: Bipolar disorder
     Dosage: 150 MILLIGRAM, QD
     Route: 065
  7. ARIPIPRAZOLE [Concomitant]
     Active Substance: ARIPIPRAZOLE
     Indication: Bipolar disorder
     Dosage: RECEIVED 10MG NIGHTLY
     Route: 065

REACTIONS (2)
  - Gastrointestinal stoma complication [Recovered/Resolved]
  - Acute kidney injury [Recovered/Resolved]
